FAERS Safety Report 8268863-X (Version None)
Quarter: 2012Q1

REPORT INFORMATION
  Report Type: 
  Country: None (occurrence: None)
  Receive Date: 20120327
  Receipt Date: 20091027
  Transmission Date: 20120608
  Serious: Yes (Other)
  Sender: FDA-Public Use
  Company Number: PHHY2008US28000

PATIENT
  Age: 59 Year
  Sex: Male

DRUGS (6)
  1. LISINOPRIL [Concomitant]
  2. GLEEVEC [Suspect]
     Indication: CHORDOMA
     Dosage: 400 MG,BID, ORAL; 400 MG, BID, ORAL; 400 MG/DAY; 800 MG/DAY
     Route: 048
     Dates: start: 20090916, end: 20091026
  3. GLEEVEC [Suspect]
     Indication: CHORDOMA
     Dosage: 400 MG,BID, ORAL; 400 MG, BID, ORAL; 400 MG/DAY; 800 MG/DAY
     Route: 048
     Dates: end: 20081001
  4. GLEEVEC [Suspect]
     Indication: CHORDOMA
     Dosage: 400 MG,BID, ORAL; 400 MG, BID, ORAL; 400 MG/DAY; 800 MG/DAY
     Route: 048
     Dates: start: 20071029
  5. HYDREA (HYDROCYCARBAMIDE) [Concomitant]
  6. AVASTIN [Concomitant]

REACTIONS (4)
  - DISEASE PROGRESSION [None]
  - DYSPNOEA [None]
  - DRUG INEFFECTIVE [None]
  - LEFT VENTRICULAR DYSFUNCTION [None]
